FAERS Safety Report 6157225-7 (Version None)
Quarter: 2009Q2

REPORT INFORMATION
  Report Type: 
  Country: None (occurrence: None)
  Receive Date: 20090416
  Receipt Date: 20090406
  Transmission Date: 20091009
  Serious: Yes (Other)
  Sender: FDA-Public Use
  Company Number: FR-BRISTOL-MYERS SQUIBB COMPANY-14576656

PATIENT
  Weight: 2 kg

DRUGS (4)
  1. AMOXICILLIN [Suspect]
     Dosage: AGAIN RECEIVED ORALLY FOR 2 WEEKS
     Route: 064
  2. AMIKACIN SULFATE [Suspect]
     Route: 064
  3. AMOXICILLIN [Suspect]
     Dosage: AGAIN RECEIVED INTRAVENOUS 200MG/KG FOUR TIMES DAILY DURING 4 WEEKS
     Route: 064
  4. HEPARIN [Concomitant]
     Dosage: 1DF=300UI/KG

REACTIONS (4)
  - HYDROCEPHALUS [None]
  - MACROCEPHALY [None]
  - MENINGITIS BACTERIAL [None]
  - PSYCHOMOTOR RETARDATION [None]
